FAERS Safety Report 8248916-2 (Version None)
Quarter: 2012Q2

REPORT INFORMATION
  Report Type: 
  Country: None (occurrence: None)
  Receive Date: 20120401
  Receipt Date: 20120323
  Transmission Date: 20120825
  Serious: No
  Sender: FDA-Public Use
  Company Number: US-BAYER-2012-030830

PATIENT
  Age: 92 Year
  Sex: Female
  Weight: 59 kg

DRUGS (1)
  1. ALEVE (CAPLET) [Suspect]
     Indication: ARTHRITIS
     Dosage: 2 TABS THREE TIMES DAILY
     Route: 048

REACTIONS (4)
  - THERAPEUTIC PRODUCT INEFFECTIVE [None]
  - THERAPY REGIMEN CHANGED [None]
  - NO ADVERSE EVENT [None]
  - DYSPEPSIA [None]
